FAERS Safety Report 20883184 (Version 2)
Quarter: 2022Q2

REPORT INFORMATION
  Report Type: Spontaneous
  Country: FR (occurrence: FR)
  Receive Date: 20220527
  Receipt Date: 20220610
  Transmission Date: 20220721
  Serious: Yes (Hospitalization)
  Sender: FDA-Public Use
  Company Number: None

PATIENT

DRUGS (12)
  1. PEGASPARGASE [Suspect]
     Active Substance: PEGASPARGASE
     Indication: Non-Hodgkin^s lymphoma
     Dosage: 5000 [IU]
     Route: 065
     Dates: start: 20220325
  2. DOXORUBICIN [Suspect]
     Active Substance: DOXORUBICIN
     Indication: Non-Hodgkin^s lymphoma
     Dosage: 30 MG, TOTAL, 30MG/M2 OR 60 MG
     Route: 041
     Dates: start: 20220330, end: 20220330
  3. DOXORUBICIN [Suspect]
     Active Substance: DOXORUBICIN
     Dosage: 30 MG, TOTAL, 30MG/M2 OR 60 MG
     Route: 041
     Dates: start: 20220406, end: 20220406
  4. DOXORUBICIN [Suspect]
     Active Substance: DOXORUBICIN
     Dosage: 30 MG, TOTAL, 30MG/M2 OR 60MG
     Route: 041
     Dates: start: 20220413, end: 20220413
  5. REMDESIVIR [Suspect]
     Active Substance: REMDESIVIR
     Indication: COVID-19
     Dosage: 200 MG, QD
     Route: 041
     Dates: start: 20220414, end: 20220414
  6. REMDESIVIR [Suspect]
     Active Substance: REMDESIVIR
     Dosage: 100 MG, QD
     Route: 041
     Dates: start: 20220415, end: 20220415
  7. VINCRISTINE SULFATE [Suspect]
     Active Substance: VINCRISTINE SULFATE
     Indication: Non-Hodgkin^s lymphoma
     Dosage: 2 MG, TOTAL, 1.5 MG/M2 OR 2 MG
     Route: 041
     Dates: start: 20220330, end: 20220330
  8. VINCRISTINE SULFATE [Suspect]
     Active Substance: VINCRISTINE SULFATE
     Dosage: 2 MG, TOTAL, 1.5 MG/M2 OR 2 MG
     Route: 041
     Dates: start: 20220413, end: 20220413
  9. VINCRISTINE SULFATE [Suspect]
     Active Substance: VINCRISTINE SULFATE
     Dosage: 2 MG, TOTAL, 1.5 MG/M2 OR 2 MG
     Route: 041
     Dates: start: 20220406, end: 20220406
  10. ESOMEPRAZOLE [Concomitant]
     Active Substance: ESOMEPRAZOLE
     Indication: Prophylaxis against gastrointestinal ulcer
     Dosage: 40 MG, QD, 2 CAPS/DAY I.E. 40MG
     Route: 048
     Dates: start: 20220323, end: 20220413
  11. DEXAMETHASONE [Concomitant]
     Active Substance: DEXAMETHASONE
     Indication: Non-Hodgkin^s lymphoma
     Dosage: 20 MG, TOTAL
     Route: 048
     Dates: start: 20220323, end: 20220413
  12. BACTRIM [Concomitant]
     Active Substance: SULFAMETHOXAZOLE\TRIMETHOPRIM
     Indication: Antibiotic prophylaxis
     Dosage: 1 CP, 3TIMES/WEEK
     Route: 048
     Dates: start: 202110

REACTIONS (4)
  - Hypertriglyceridaemia [Unknown]
  - Haemophagocytic lymphohistiocytosis [Recovering/Resolving]
  - Seizure [Recovered/Resolved]
  - Arthralgia [Recovered/Resolved]

NARRATIVE: CASE EVENT DATE: 20220414
